FAERS Safety Report 8552860 (Version 2)
Quarter: 2012Q4

REPORT INFORMATION
  Report Type: 
  Country: ES (occurrence: ES)
  Receive Date: 20120508
  Receipt Date: 20121008
  Transmission Date: 20130627
  Serious: Yes (Hospitalization)
  Sender: FDA-Public Use
  Company Number: ES-ELI_LILLY_AND_COMPANY-ES201204009119

PATIENT
  Age: 75 Year
  Sex: Female
  Weight: 80 kg

DRUGS (12)
  1. FORSTEO [Suspect]
     Indication: OSTEOPOROSIS
     Dosage: 20 ug, qd
     Route: 058
     Dates: start: 201202
  2. NORVAS [Concomitant]
     Indication: HYPERTENSION
     Dosage: 1 DF, qd
     Route: 048
  3. TRILEPTAL [Concomitant]
     Indication: EPILEPSY
     Dosage: 1 DF, bid
     Route: 048
  4. TIRODRIL [Concomitant]
     Indication: HYPOTHYROIDISM
     Dosage: 1 DF, qd
     Route: 048
  5. INSULATARD [Concomitant]
     Indication: DIABETES MELLITUS
     Dosage: UNK, other
     Route: 058
  6. IBUPROFENO [Concomitant]
     Indication: PAIN
     Dosage: UNK, prn
     Route: 048
  7. TRAMADOL [Concomitant]
     Indication: PAIN
     Dosage: UNK, prn
     Route: 048
  8. PARACETAMOL [Concomitant]
     Indication: PAIN
     Dosage: 1 DF, prn
     Route: 048
     Dates: end: 20120424
  9. PARACETAMOL [Concomitant]
     Dosage: UNK
     Route: 042
     Dates: start: 20120404
  10. CIPROFLOXACINO [Concomitant]
     Dosage: 1 DF, bid
     Route: 048
     Dates: end: 20120424
  11. CIPROFLOXACINO [Concomitant]
     Dosage: UNK, unknown
     Route: 042
     Dates: start: 20120424
  12. SECALIP [Concomitant]
     Indication: PAIN
     Dosage: 1 DF, qd
     Route: 048

REACTIONS (1)
  - Cholelithiasis [Not Recovered/Not Resolved]
